FAERS Safety Report 4690523-2 (Version None)
Quarter: 2005Q2

REPORT INFORMATION
  Report Type: 
  Country: None (occurrence: None)
  Receive Date: 20050615
  Receipt Date: 20050311
  Transmission Date: 20051028
  Serious: Yes (Hospitalization, Other)
  Sender: FDA-Public Use
  Company Number: US-MERCK-0503USA02722

PATIENT
  Age: 40 Year
  Sex: Male
  Weight: 107 kg

DRUGS (3)
  1. VALTREX [Concomitant]
     Route: 065
     Dates: start: 19900101
  2. VIOXX [Suspect]
     Indication: BACK INJURY
     Route: 048
     Dates: start: 20000101, end: 20040901
  3. VITAMINS (UNSPECIFIED) [Concomitant]
     Route: 065

REACTIONS (8)
  - ARTERIOVENOUS MALFORMATION [None]
  - BLOOD CREATININE INCREASED [None]
  - CHEST WALL PAIN [None]
  - CORONARY ARTERY ATHEROSCLEROSIS [None]
  - LABILE HYPERTENSION [None]
  - MYOCARDIAL INFARCTION [None]
  - PANIC ATTACK [None]
  - VIRAL INFECTION [None]
